FAERS Safety Report 5541492-4 (Version None)
Quarter: 2007Q4

REPORT INFORMATION
  Report Type: 
  Country: None (occurrence: None)
  Receive Date: 20071210
  Receipt Date: 20071129
  Transmission Date: 20080405
  Serious: Yes (Life-Threatening, Hospitalization)
  Sender: FDA-Public Use
  Company Number: ES-JNJFOC-20071200634

PATIENT
  Age: 60 Year
  Sex: Male

DRUGS (3)
  1. REMICADE [Suspect]
     Route: 042
  2. REMICADE [Suspect]
     Indication: ANKYLOSING SPONDYLITIS
     Route: 042
  3. HEPARIN [Suspect]
     Indication: ANTICOAGULANT THERAPY

REACTIONS (4)
  - ATRIAL FLUTTER [None]
  - PNEUMONIA [None]
  - RETROPERITONEAL HAEMORRHAGE [None]
  - VASCULAR RUPTURE [None]
